FAERS Safety Report 9752196 (Version 1)
Quarter: 2013Q4

REPORT INFORMATION
  Report Type: Spontaneous
  Country: US (occurrence: US)
  Receive Date: 20131213
  Receipt Date: 20131213
  Transmission Date: 20140711
  Serious: Yes (Hospitalization)
  Sender: FDA-Public Use
  Company Number: US-ROCHE-1317952

PATIENT
  Sex: Male

DRUGS (2)
  1. RIBAVIRIN [Suspect]
     Indication: CHRONIC HEPATITIS C
     Route: 065
     Dates: start: 2006
  2. PEGINTRON [Suspect]
     Indication: CHRONIC HEPATITIS C
     Route: 065
     Dates: start: 2006

REACTIONS (1)
  - Hepatitis C [Unknown]
